FAERS Safety Report 20067541 (Version 1)
Quarter: 2021Q4

REPORT INFORMATION
  Report Type: Spontaneous
  Country: US (occurrence: US)
  Receive Date: 20211115
  Receipt Date: 20211115
  Transmission Date: 20220303
  Serious: Yes (Other)
  Sender: FDA-Public Use
  Company Number: US-GLAXOSMITHKLINE-US2021GSK234054

PATIENT
  Sex: Male

DRUGS (10)
  1. ZANTAC [Suspect]
     Active Substance: RANITIDINE HYDROCHLORIDE
     Indication: Erosive oesophagitis
     Dosage: 150 MG, QD
     Route: 065
     Dates: start: 200803, end: 201807
  2. ZANTAC [Suspect]
     Active Substance: RANITIDINE HYDROCHLORIDE
     Indication: Dyspepsia
     Dosage: UNK
  3. ZANTAC [Suspect]
     Active Substance: RANITIDINE HYDROCHLORIDE
     Indication: Erosive oesophagitis
     Dosage: 150 MG, QD
     Route: 065
     Dates: start: 200803, end: 201807
  4. ZANTAC [Suspect]
     Active Substance: RANITIDINE HYDROCHLORIDE
     Indication: Dyspepsia
     Dosage: UNK
  5. ZANTAC [Suspect]
     Active Substance: RANITIDINE HYDROCHLORIDE
     Indication: Erosive oesophagitis
     Dosage: 150 MG, QD
     Route: 065
     Dates: start: 200803, end: 201807
  6. ZANTAC [Suspect]
     Active Substance: RANITIDINE HYDROCHLORIDE
     Indication: Dyspepsia
     Dosage: UNK
  7. RANITIDINE [Suspect]
     Active Substance: RANITIDINE
     Indication: Erosive oesophagitis
     Dosage: 75 MG
     Route: 065
     Dates: start: 200803, end: 201807
  8. RANITIDINE [Suspect]
     Active Substance: RANITIDINE
     Indication: Dyspepsia
     Dosage: 150 MG
     Route: 065
     Dates: start: 200803, end: 201807
  9. RANITIDINE [Suspect]
     Active Substance: RANITIDINE
     Indication: Erosive oesophagitis
     Dosage: 75 MG OVER THE COUNTER
     Route: 065
     Dates: start: 200803, end: 201807
  10. RANITIDINE [Suspect]
     Active Substance: RANITIDINE
     Indication: Dyspepsia
     Dosage: 150 MG
     Route: 065
     Dates: start: 200803, end: 201807

REACTIONS (1)
  - Gastric cancer [Unknown]
